FAERS Safety Report 4377156-2 (Version None)
Quarter: 2004Q2

REPORT INFORMATION
  Report Type: 
  Country: None (occurrence: None)
  Receive Date: 20040608
  Receipt Date: 20040526
  Transmission Date: 20050107
  Serious: Yes (Hospitalization)
  Sender: FDA-Public Use
  Company Number: GBWYE788428MAY04

PATIENT
  Age: 61 Year
  Sex: Female

DRUGS (8)
  1. ADVIL [Suspect]
  2. LISINOPRIL [Suspect]
     Indication: MYOCARDIAL INFARCTION
  3. METFORMIN HCL [Suspect]
     Indication: DIABETES MELLITUS INSULIN-DEPENDENT
  4. ASPIRIN [Concomitant]
  5. ATENOLOL [Concomitant]
  6. CLOPIDOGREL (CLOPIDOGREL) [Concomitant]
  7. AMLODIPINE [Concomitant]
  8. STARLIX [Concomitant]

REACTIONS (7)
  - GENERAL PHYSICAL HEALTH DETERIORATION [None]
  - HAEMODIALYSIS [None]
  - HYPOTENSION [None]
  - LACTIC ACIDOSIS [None]
  - LIVER FUNCTION TEST ABNORMAL [None]
  - PANCREATITIS [None]
  - RENAL FAILURE ACUTE [None]
